FAERS Safety Report 6445304-6 (Version None)
Quarter: 2009Q4

REPORT INFORMATION
  Report Type: 
  Country: None (occurrence: None)
  Receive Date: 20091118
  Receipt Date: 20091112
  Transmission Date: 20100525
  Serious: Yes (Other)
  Sender: FDA-Public Use
  Company Number: US-GENENTECH-293601

PATIENT
  Sex: Female
  Weight: 72 kg

DRUGS (1)
  1. XOLAIR [Suspect]
     Indication: ASTHMA
     Dosage: 375 MG, Q2W
     Route: 058
     Dates: start: 20060606, end: 20091023

REACTIONS (3)
  - DYSPNOEA [None]
  - URTICARIA [None]
  - WHEEZING [None]
